FAERS Safety Report 8474184-2 (Version None)
Quarter: 2012Q2

REPORT INFORMATION
  Report Type: 
  Country: None (occurrence: None)
  Receive Date: 20120628
  Receipt Date: 20120624
  Transmission Date: 20120825
  Serious: Yes (Other)
  Sender: FDA-Public Use
  Company Number: US-PFIZER INC-2012151173

PATIENT
  Sex: Female

DRUGS (1)
  1. LATANOPROST [Suspect]
     Dosage: UNK

REACTIONS (7)
  - INFLUENZA [None]
  - ANGINA PECTORIS [None]
  - ASTHMA [None]
  - NASOPHARYNGITIS [None]
  - DYSPNOEA [None]
  - COUGH [None]
  - BACK PAIN [None]
